FAERS Safety Report 6414717-0 (Version None)
Quarter: 2009Q4

REPORT INFORMATION
  Report Type: 
  Country: None (occurrence: None)
  Receive Date: 20091026
  Receipt Date: 20091015
  Transmission Date: 20100525
  Serious: Yes (Death, Hospitalization, Other)
  Sender: FDA-Public Use
  Company Number: US-BAXTER-2009BH016462

PATIENT
  Age: 37 Year
  Sex: Male

DRUGS (1)
  1. DIANEAL [Suspect]
     Indication: PERITONEAL DIALYSIS
     Route: 033
     Dates: end: 20090928

REACTIONS (5)
  - ENDOCARDITIS [None]
  - HYPERGLYCAEMIA [None]
  - OSTEOMYELITIS [None]
  - PERITONEAL CLOUDY EFFLUENT [None]
  - SEPSIS [None]
